FAERS Safety Report 18042299 (Version 1)
Quarter: 2020Q3

REPORT INFORMATION
  Report Type: Spontaneous
  Country: US (occurrence: US)
  Receive Date: 20200720
  Receipt Date: 20200720
  Transmission Date: 20201103
  Serious: No
  Sender: FDA-Public Use
  Company Number: NVSC2020US203625

PATIENT
  Age: 75 Year
  Sex: Female

DRUGS (2)
  1. VOLTAREN EMULGEL [Suspect]
     Active Substance: DICLOFENAC DIETHYLAMINE
     Indication: ARTHRALGIA
  2. VOLTAREN EMULGEL [Suspect]
     Active Substance: DICLOFENAC DIETHYLAMINE
     Indication: BACK PAIN
     Dosage: UNK
     Route: 065
     Dates: start: 201502

REACTIONS (4)
  - Drug effective for unapproved indication [Unknown]
  - Off label use [Unknown]
  - Product administered at inappropriate site [Unknown]
  - Product use in unapproved indication [Unknown]
